FAERS Safety Report 11912151 (Version 2)
Quarter: 2016Q2

REPORT INFORMATION
  Report Type: Spontaneous
  Country: FR (occurrence: FR)
  Receive Date: 20160112
  Receipt Date: 20160428
  Transmission Date: 20160815
  Serious: Yes (Life-Threatening, Hospitalization, Other)
  Sender: FDA-Public Use
  Company Number: FR-BRISTOL-MYERS SQUIBB COMPANY-BMS-2015-037475

PATIENT
  Age: 70 Year
  Sex: Female

DRUGS (7)
  1. DIVARIUS [Concomitant]
     Active Substance: PAROXETINE MESYLATE
     Indication: PRODUCT USED FOR UNKNOWN INDICATION
     Dosage: UNK, QD
     Route: 048
  2. TOPALGIC                           /00599202/ [Concomitant]
     Active Substance: TRAMADOL
     Indication: ARTHRALGIA
     Dosage: 50 MG, TID
     Route: 048
  3. INNOHEP [Suspect]
     Active Substance: TINZAPARIN SODIUM
     Indication: SURGERY
     Dosage: 0.6 ML, QD
     Route: 058
     Dates: start: 20150407, end: 20150506
  4. COUMADINE [Suspect]
     Active Substance: WARFARIN SODIUM
     Indication: ATRIAL FIBRILLATION
     Dosage: 1 TAB, BID
     Route: 048
     Dates: start: 20150213, end: 20150407
  5. TEMESTA                            /00273201/ [Concomitant]
     Active Substance: LORAZEPAM
     Indication: ANXIETY
     Dosage: 2.5 MG, QD
     Route: 048
  6. INNOHEP [Suspect]
     Active Substance: TINZAPARIN SODIUM
     Indication: THROMBOSIS PROPHYLAXIS
  7. STILNOX [Concomitant]
     Active Substance: ZOLPIDEM TARTRATE
     Indication: INSOMNIA
     Dosage: 10 MG, QD
     Route: 048

REACTIONS (10)
  - Coma [Unknown]
  - Pulmonary oedema [Unknown]
  - Anaemia [Recovered/Resolved]
  - Transfusion [Recovered/Resolved]
  - Renal failure [Unknown]
  - Shock haemorrhagic [Recovering/Resolving]
  - Retroperitoneal haematoma [Recovering/Resolving]
  - International normalised ratio increased [Recovered/Resolved]
  - Circulatory collapse [Recovering/Resolving]
  - Intra-abdominal haematoma [Recovering/Resolving]

NARRATIVE: CASE EVENT DATE: 20150410
